FAERS Safety Report 6688359-6 (Version None)
Quarter: 2010Q2

REPORT INFORMATION
  Report Type: 
  Country: None (occurrence: None)
  Receive Date: 20100420
  Receipt Date: 20100409
  Transmission Date: 20101027
  Serious: Yes (Other)
  Sender: FDA-Public Use
  Company Number: PHHY2010CA20305

PATIENT
  Sex: Male

DRUGS (1)
  1. SANDOSTATIN [Suspect]
     Indication: PANCREATIC CARCINOMA
     Dosage: 150 MCG, DAILY
     Route: 058
     Dates: start: 20081101

REACTIONS (3)
  - CATARACT [None]
  - CATARACT OPERATION [None]
  - CONDITION AGGRAVATED [None]
